FAERS Safety Report 7299915-9 (Version None)
Quarter: 2011Q1

REPORT INFORMATION
  Report Type: 
  Country: None (occurrence: None)
  Receive Date: 20110217
  Receipt Date: 20110214
  Transmission Date: 20110831
  Serious: Yes (Life-Threatening)
  Sender: FDA-Public Use
  Company Number: JP-PFIZER INC-2011025341

PATIENT
  Age: 73 Year
  Sex: Male

DRUGS (2)
  1. GABAPEN [Suspect]
     Indication: PAIN
     Dosage: 1200 MG DAILY
     Route: 048
  2. LYRICA [Suspect]
     Indication: PAIN
     Dosage: 150 MG DAILY
     Route: 048
     Dates: start: 20101001

REACTIONS (2)
  - BLOOD PRESSURE FLUCTUATION [None]
  - TACHYCARDIA [None]
